FAERS Safety Report 6981614-1 (Version None)
Quarter: 2010Q3

REPORT INFORMATION
  Report Type: 
  Country: None (occurrence: None)
  Receive Date: 20100914
  Receipt Date: 20090915
  Transmission Date: 20110219
  Serious: No
  Sender: FDA-Public Use
  Company Number: US-PFIZER INC-2009253235

PATIENT
  Sex: Male

DRUGS (2)
  1. LYRICA [Suspect]
     Indication: HERPES ZOSTER
     Dosage: 150 MG, 3X/DAY
     Route: 048
     Dates: start: 20090806, end: 20090807
  2. MORPHINE SULFATE [Suspect]
     Indication: BACK PAIN
     Dosage: UNK
     Route: 037

REACTIONS (5)
  - COORDINATION ABNORMAL [None]
  - DISORIENTATION [None]
  - DIZZINESS [None]
  - FUMBLING [None]
  - INCOHERENT [None]
